FAERS Safety Report 18315726 (Version 2)
Quarter: 2020Q4

REPORT INFORMATION
  Report Type: Report from Study
  Country: BR (occurrence: BR)
  Receive Date: 20200926
  Receipt Date: 20201006
  Transmission Date: 20210113
  Serious: Yes (Hospitalization, Other)
  Sender: FDA-Public Use
  Company Number: NVSC2020BR066746

PATIENT
  Age: 34 Year
  Sex: Male

DRUGS (1)
  1. COSENTYX [Suspect]
     Active Substance: SECUKINUMAB
     Indication: PSORIASIS
     Dosage: 300 MG, UNKNOWN
     Route: 065
     Dates: start: 20190408, end: 20191112

REACTIONS (14)
  - Road traffic accident [Recovering/Resolving]
  - Wrist fracture [Recovering/Resolving]
  - Ulna fracture [Recovering/Resolving]
  - Joint dislocation [Recovering/Resolving]
  - Arthritis [Unknown]
  - Rib fracture [Recovering/Resolving]
  - Psoriasis [Unknown]
  - Stress [Unknown]
  - Haemothorax [Unknown]
  - Humerus fracture [Recovering/Resolving]
  - Skin injury [Not Recovered/Not Resolved]
  - Nail injury [Not Recovered/Not Resolved]
  - Balance disorder [Unknown]
  - Upper limb fracture [Recovering/Resolving]

NARRATIVE: CASE EVENT DATE: 20191228
